FAERS Safety Report 4286657-7 (Version None)
Quarter: 2004Q1

REPORT INFORMATION
  Report Type: 
  Country: None (occurrence: None)
  Receive Date: 20040206
  Receipt Date: 20040126
  Transmission Date: 20041129
  Serious: Yes (Death)
  Sender: FDA-Public Use
  Company Number: WAES 0401NOR00020

PATIENT
  Age: 92 Year
  Sex: Male

DRUGS (4)
  1. ALLOPURINOL [Concomitant]
     Route: 048
  2. ASPIRIN AND MAGNESIUM OXIDE [Suspect]
     Route: 048
  3. RANITIDINE HYDROCHLORIDE [Concomitant]
     Route: 048
  4. VIOXX [Suspect]
     Route: 048
     Dates: end: 20040103

REACTIONS (4)
  - CARDIOGENIC SHOCK [None]
  - GASTRIC ULCER [None]
  - HAEMATEMESIS [None]
  - MELAENA [None]
